FAERS Safety Report 5103479-5 (Version None)
Quarter: 2006Q3

REPORT INFORMATION
  Report Type: 
  Country: None (occurrence: None)
  Receive Date: 20060913
  Receipt Date: 20060905
  Transmission Date: 20061208
  Serious: Yes (Death, Hospitalization)
  Sender: FDA-Public Use
  Company Number: US-JNJFOC-20060902201

PATIENT
  Age: 43 Year
  Sex: Female

DRUGS (2)
  1. CYCLOBENZAPRINE HCL [Suspect]
     Indication: SUICIDE ATTEMPT
     Route: 048
  2. ACETAMINOPHEN AND HYDROCODONE BITARTRATE [Suspect]
     Indication: SUICIDE ATTEMPT
     Route: 048

REACTIONS (6)
  - COMA [None]
  - COMPLETED SUICIDE [None]
  - CONVULSION [None]
  - HEPATIC FUNCTION ABNORMAL [None]
  - INTENTIONAL DRUG MISUSE [None]
  - RESPIRATORY DISTRESS [None]
